FAERS Safety Report 14604662 (Version 1)
Quarter: 2018Q1

REPORT INFORMATION
  Report Type: Report from Study
  Country: DE (occurrence: DE)
  Receive Date: 20180306
  Receipt Date: 20180306
  Transmission Date: 20180509
  Serious: Yes (Death)
  Sender: FDA-Public Use
  Company Number: PHHY2018DE035756

PATIENT
  Age: 68 Year
  Sex: Male
  Weight: 118 kg

DRUGS (4)
  1. SPIRONOLACTONE. [Concomitant]
     Active Substance: SPIRONOLACTONE
     Indication: PRODUCT USED FOR UNKNOWN INDICATION
     Dosage: 25 OT, UNK
     Route: 065
     Dates: start: 20150319
  2. ENTRESTO [Suspect]
     Active Substance: SACUBITRIL\VALSARTAN
     Indication: CARDIAC FAILURE
     Dosage: 1 DF (SACUBITRIL 24 MG/ VALSARTAN 26 MG), UNK
     Route: 065
     Dates: start: 20171120
  3. METOPROLOL. [Concomitant]
     Active Substance: METOPROLOL
     Indication: PRODUCT USED FOR UNKNOWN INDICATION
     Dosage: 95 OT, UNK
     Route: 065
     Dates: start: 20140101
  4. TORASEMIDE [Concomitant]
     Active Substance: TORSEMIDE
     Indication: PRODUCT USED FOR UNKNOWN INDICATION
     Dosage: 50 OT, UNK
     Route: 065
     Dates: start: 20100101

REACTIONS (1)
  - Complication associated with device [Fatal]

NARRATIVE: CASE EVENT DATE: 20180206
